FAERS Safety Report 15250153 (Version 1)
Quarter: 2018Q4

REPORT INFORMATION
  Report Type: Spontaneous
  Country: AU (occurrence: AU)
  Receive Date: 20180807
  Receipt Date: 20180807
  Transmission Date: 20190204
  Serious: Yes (Life-Threatening, Hospitalization)
  Sender: FDA-Public Use
  Company Number: AU-MYLANLABS-2018M1059028

PATIENT
  Age: 65 Year
  Sex: Female

DRUGS (2)
  1. VERAPAMIL [Suspect]
     Active Substance: VERAPAMIL HYDROCHLORIDE
     Indication: PRODUCT USED FOR UNKNOWN INDICATION
     Dosage: EXTENDED-RELEASE
     Route: 065
  2. HYDROCHLOROTHIAZIDE/TELMISARTAN [Suspect]
     Active Substance: HYDROCHLOROTHIAZIDE\TELMISARTAN
     Indication: PRODUCT USED FOR UNKNOWN INDICATION
     Dosage: 1680/525 MG
     Route: 065

REACTIONS (5)
  - Bradycardia [Recovered/Resolved]
  - Cardiac arrest [Recovered/Resolved]
  - Shock [Recovered/Resolved]
  - Overdose [Recovered/Resolved]
  - Hypotension [Recovered/Resolved]
